FAERS Safety Report 9203448 (Version 1)
Quarter: 2013Q1

REPORT INFORMATION
  Report Type: Spontaneous
  Country: RO (occurrence: None)
  Receive Date: 20130328
  Receipt Date: 20130328
  Transmission Date: 20140127
  Serious: Yes (Other)
  Sender: FDA-Public Use
  Company Number: AUR-APL-2013-02539

PATIENT
  Age: 32 Year
  Sex: Female
  Weight: 125 kg

DRUGS (6)
  1. AMLODIPINE (AMLODIPINE) [Suspect]
     Indication: BLOOD PRESSURE INCREASED
  2. ALPHA-METHYLDOPA [Suspect]
     Indication: BLOOD PRESSURE INCREASED
  3. FOLIC ACID (FOLIC ACID) [Concomitant]
  4. VITAMIN B6 (PYRIDOXINE HYDROCHLORIDE) [Concomitant]
  5. VITAMIN B12 (VITAMIN B12 NOS) [Concomitant]
  6. ENOXAPARINE (ENOXAPARIN) [Concomitant]

REACTIONS (4)
  - Caesarean section [None]
  - Blood pressure increased [None]
  - Exposure during pregnancy [None]
  - No therapeutic response [None]
